FAERS Safety Report 9057831 (Version 1)
Quarter: 2013Q1

REPORT INFORMATION
  Report Type: Spontaneous
  Country: US (occurrence: US)
  Receive Date: 20130204
  Receipt Date: 20130204
  Transmission Date: 20140127
  Serious: Yes (Hospitalization, Other)
  Sender: FDA-Public Use
  Company Number: US-009507513-2012SP028675

PATIENT
  Sex: Female
  Weight: 54.42 kg

DRUGS (1)
  1. NUVARING [Suspect]
     Indication: CONTRACEPTION
     Dosage: UNK
     Dates: start: 200606, end: 20100610

REACTIONS (12)
  - Thyroidectomy [Unknown]
  - Pulmonary embolism [Recovered/Resolved]
  - Haemorrhagic disorder [Unknown]
  - Temporomandibular joint syndrome [Unknown]
  - Thyroid neoplasm [Unknown]
  - Cardiac murmur [Unknown]
  - Sedation [Unknown]
  - Adverse drug reaction [Unknown]
  - Antiphospholipid antibodies positive [Unknown]
  - Anxiety [Unknown]
  - Depression [Unknown]
  - Maternal exposure before pregnancy [Unknown]
